FAERS Safety Report 9463783 (Version 1)
Quarter: 2013Q3

REPORT INFORMATION
  Report Type: Spontaneous
  Country: US (occurrence: US)
  Receive Date: 20130819
  Receipt Date: 20130819
  Transmission Date: 20140515
  Serious: No
  Sender: FDA-Public Use
  Company Number: US-009507513-1308USA007403

PATIENT
  Sex: Female

DRUGS (1)
  1. SAPHRIS [Suspect]
     Dosage: UNK (BLACK CHERRY FLAVOR)
     Dates: start: 20130809

REACTIONS (1)
  - Gastrointestinal disorder [Not Recovered/Not Resolved]
